FAERS Safety Report 18632703 (Version 1)
Quarter: 2020Q4

REPORT INFORMATION
  Report Type: Report from Study
  Country: US (occurrence: US)
  Receive Date: 20201218
  Receipt Date: 20201218
  Transmission Date: 20210114
  Serious: No
  Sender: FDA-Public Use
  Company Number: NVSC2020US328388

PATIENT
  Sex: Male

DRUGS (1)
  1. ENTRESTO [Suspect]
     Active Substance: SACUBITRIL\VALSARTAN
     Indication: CARDIAC FAILURE
     Dosage: 50 MG, BID (24.26MG)
     Route: 048
     Dates: start: 2019

REACTIONS (4)
  - Pruritus [Unknown]
  - Somnolence [Unknown]
  - Nasal disorder [Unknown]
  - Cough [Unknown]

NARRATIVE: CASE EVENT DATE: 2019
